FAERS Safety Report 6386387-1 (Version None)
Quarter: 2009Q4

REPORT INFORMATION
  Report Type: 
  Country: None (occurrence: None)
  Receive Date: 20091002
  Receipt Date: 20090921
  Transmission Date: 20100525
  Serious: No
  Sender: FDA-Public Use
  Company Number: ES-AVENTIS-200920958GDDC

PATIENT
  Sex: Female

DRUGS (1)
  1. ARAVA [Suspect]
     Dosage: DOSE: UNK
     Dates: start: 20080101

REACTIONS (1)
  - DRUG EXPOSURE DURING PREGNANCY [None]
